FAERS Safety Report 5694239-5 (Version None)
Quarter: 2008Q2

REPORT INFORMATION
  Report Type: 
  Country: None (occurrence: None)
  Receive Date: 20080403
  Receipt Date: 20080403
  Transmission Date: 20081010
  Serious: Yes (Other)
  Sender: FDA-Public Use
  Company Number: None

PATIENT
  Age: 38 Year
  Sex: Male

DRUGS (1)
  1. ALBUMIN (HUMAN) [Suspect]
     Indication: MULTIPLE SCLEROSIS
     Dosage: 317 ML X1 IV DRIP
     Route: 041
     Dates: start: 20080301, end: 20080401

REACTIONS (2)
  - NAUSEA [None]
  - URTICARIA [None]
